FAERS Safety Report 5873957-X (Version None)
Quarter: 2008Q3

REPORT INFORMATION
  Report Type: 
  Country: None (occurrence: None)
  Receive Date: 20080908
  Receipt Date: 20080827
  Transmission Date: 20090109
  Serious: Yes (Hospitalization, Other)
  Sender: FDA-Public Use
  Company Number: US-MERCK-0710USA03033

PATIENT
  Age: 74 Year
  Sex: Female
  Weight: 83 kg

DRUGS (5)
  1. FOSAMAX [Suspect]
     Indication: OSTEOPOROSIS
     Route: 048
     Dates: start: 20020801, end: 20060107
  2. CYPROHEPTADINE HYDROCHLORIDE [Concomitant]
     Indication: APPETITE DISORDER
     Route: 048
  3. LISINOPRIL [Concomitant]
     Indication: HYPERTENSION
     Route: 048
  4. PENTOXIFYLLINE [Concomitant]
     Indication: CARDIOVASCULAR INSUFFICIENCY
     Route: 048
  5. HYDROCHLOROTHIAZIDE [Concomitant]
     Route: 048

REACTIONS (10)
  - DENTAL CARIES [None]
  - FALL [None]
  - FEMUR FRACTURE [None]
  - GINGIVAL DISORDER [None]
  - IMPAIRED HEALING [None]
  - ORAL TORUS [None]
  - OSTEOMYELITIS [None]
  - OSTEONECROSIS [None]
  - SYNOVIAL CYST [None]
  - URINARY TRACT INFECTION [None]
